FAERS Safety Report 14798786 (Version 1)
Quarter: 2018Q2

REPORT INFORMATION
  Report Type: Report from Study
  Country: KR (occurrence: KR)
  Receive Date: 20180424
  Receipt Date: 20180424
  Transmission Date: 20180711
  Serious: Yes (Death, Other)
  Sender: FDA-Public Use
  Company Number: KR-BAXTER-2018BAX012636

PATIENT

DRUGS (2)
  1. BUSULFAN. [Suspect]
     Active Substance: BUSULFAN
     Indication: ACUTE MYELOID LEUKAEMIA RECURRENT
     Dosage: ON DAYS -7 TO -4
     Route: 065
  2. ENDOXAN 500MG INJ. (CYCLOPHOSPHAMIDE) [Suspect]
     Active Substance: CYCLOPHOSPHAMIDE
     Indication: ACUTE MYELOID LEUKAEMIA RECURRENT
     Dosage: DAY -3 TO -2
     Route: 065

REACTIONS (3)
  - Graft versus host disease [Fatal]
  - Febrile neutropenia [Unknown]
  - Bone marrow failure [Unknown]
